FAERS Safety Report 14390539 (Version 1)
Quarter: 2018Q1

REPORT INFORMATION
  Report Type: Spontaneous
  Country: US (occurrence: US)
  Receive Date: 20180116
  Receipt Date: 20180116
  Transmission Date: 20180509
  Serious: Yes (Other)
  Sender: FDA-Public Use
  Company Number: US-ASTRAZENECA-2018SE03519

PATIENT
  Age: 73 Year
  Sex: Female

DRUGS (3)
  1. PAZOPANIB [Interacting]
     Active Substance: PAZOPANIB
     Route: 065
  2. PAZOPANIB [Interacting]
     Active Substance: PAZOPANIB
     Route: 065
  3. ROSUVASTATIN. [Suspect]
     Active Substance: ROSUVASTATIN
     Indication: HYPERLIPIDAEMIA
     Route: 048

REACTIONS (2)
  - Drug interaction [Unknown]
  - Rhabdomyolysis [Recovered/Resolved]
